FAERS Safety Report 21510588 (Version 1)
Quarter: 2022Q4

REPORT INFORMATION
  Report Type: Spontaneous
  Country: FR (occurrence: FR)
  Receive Date: 20221026
  Receipt Date: 20221026
  Transmission Date: 20230113
  Serious: Yes (Other)
  Sender: FDA-Public Use
  Company Number: None

PATIENT
  Age: 45 Year
  Sex: Female

DRUGS (2)
  1. KEYTRUDA [Suspect]
     Active Substance: PEMBROLIZUMAB
     Indication: Breast cancer
     Dosage: UNK UNK, 1 CYCLICAL
     Route: 042
     Dates: start: 20220527
  2. DOXORUBICIN [Suspect]
     Active Substance: DOXORUBICIN
     Indication: Breast cancer
     Dosage: UNK UNK, 1 CYCLICAL
     Route: 042
     Dates: start: 20220527

REACTIONS (1)
  - Troponin increased [Not Recovered/Not Resolved]

NARRATIVE: CASE EVENT DATE: 20220817
